FAERS Safety Report 8035687-8 (Version None)
Quarter: 2011Q4

REPORT INFORMATION
  Report Type: 
  Country: None (occurrence: None)
  Receive Date: 20111227
  Receipt Date: 20111118
  Transmission Date: 20120403
  Serious: Yes (Other)
  Sender: FDA-Public Use
  Company Number: US-1189124

PATIENT
  Age: 69 Year
  Sex: Male
  Weight: 89.3586 kg

DRUGS (7)
  1. BSS [Suspect]
     Indication: CATARACT OPERATION
     Dosage: INTRAOCULAR
     Route: 031
     Dates: start: 20111115, end: 20111115
  2. BSS [Suspect]
  3. BETADINE [Concomitant]
  4. NEVANAC [Suspect]
     Indication: CATARACT OPERATION
     Dosage: OPHTHALMIC
     Route: 047
  5. PREDNISOLONE ACETATE [Suspect]
     Indication: CATARACT OPERATION
     Dosage: OPHTHALMIC
     Route: 047
  6. TETRACAINE POLYGYL STERILE OPHTHALMIC SOLUTION [Suspect]
     Indication: CATARACT OPERATION
     Dosage: OPHTHALMIC
     Route: 047
  7. VIGAMOX [Suspect]
     Indication: CATARACT OPERATION
     Dosage: OPHTHALMIC
     Route: 047

REACTIONS (1)
  - TOXIC ANTERIOR SEGMENT SYNDROME [None]
